FAERS Safety Report 20137335 (Version 2)
Quarter: 2021Q4

REPORT INFORMATION
  Report Type: Spontaneous
  Country: RU (occurrence: RU)
  Receive Date: 20211201
  Receipt Date: 20211210
  Transmission Date: 20220303
  Serious: Yes (Hospitalization, Other)
  Sender: FDA-Public Use
  Company Number: RU-RECORDATI-2021004959

PATIENT

DRUGS (3)
  1. PITAVASTATIN CALCIUM [Suspect]
     Active Substance: PITAVASTATIN CALCIUM
     Indication: Hypercholesterolaemia
     Dosage: 1 DOSAGE FORM, QD
     Route: 048
     Dates: start: 20211016, end: 202111
  2. HYPOSART [Concomitant]
     Indication: Hypertension
     Dosage: 1 DOSAGE FORM, QD
     Route: 048
     Dates: start: 20211016, end: 20211113
  3. BISOPROLOL [Concomitant]
     Active Substance: BISOPROLOL
     Indication: Hypertension
     Dosage: 1 DOSAGE FORM, QD
     Route: 048
     Dates: start: 20211016, end: 20211113

REACTIONS (7)
  - Pyelonephritis acute [Recovered/Resolved]
  - Chronic kidney disease [Recovering/Resolving]
  - Hypertension [Recovering/Resolving]
  - Acute kidney injury [Recovered/Resolved]
  - Malaise [Recovering/Resolving]
  - Myalgia [Recovered/Resolved]
  - Blood creatine phosphokinase increased [Recovering/Resolving]

NARRATIVE: CASE EVENT DATE: 20211101
